FAERS Safety Report 7289879-6 (Version None)
Quarter: 2011Q1

REPORT INFORMATION
  Report Type: 
  Country: None (occurrence: None)
  Receive Date: 20110126
  Receipt Date: 20091021
  Transmission Date: 20110831
  Serious: Yes (Other)
  Sender: FDA-Public Use
  Company Number: 2009AP004147

PATIENT
  Age: 20 Year
  Sex: Male

DRUGS (4)
  1. OXCARBAZEPINE [Suspect]
     Dosage: 2 TAB;BID;PO
     Route: 048
     Dates: start: 20080520
  2. TOPAMAX [Suspect]
     Dosage: PO
     Route: 048
  3. RISPERDONE [Concomitant]
  4. RISPERIDONE [Suspect]
     Indication: ABNORMAL BEHAVIOUR
     Dosage: 0.5 MG;BID;PO
     Route: 048

REACTIONS (4)
  - GASTROINTESTINAL INFLAMMATION [None]
  - HAEMATOCHEZIA [None]
  - WRONG TECHNIQUE IN DRUG USAGE PROCESS [None]
  - ANAEMIA [None]
